FAERS Safety Report 7411389-3 (Version None)
Quarter: 2011Q2

REPORT INFORMATION
  Report Type: 
  Country: None (occurrence: None)
  Receive Date: 20110413
  Receipt Date: 20100730
  Transmission Date: 20111010
  Serious: Yes (Hospitalization)
  Sender: FDA-Public Use
  Company Number: US-BRISTOL-MYERS SQUIBB COMPANY-15187156

PATIENT
  Age: 59 Year
  Sex: Male

DRUGS (4)
  1. ERBITUX [Suspect]
     Indication: HEAD AND NECK CANCER
     Dosage: 15JUN10:888MG,22JUN:555MG,29JUN:416MG,6JUL:416MG,13,20,27JUL2010:555MG
     Route: 042
     Dates: start: 20100615, end: 20100727
  2. RADIATION THERAPY [Concomitant]
  3. ACETAMINOPHEN [Concomitant]
     Indication: PREMEDICATION
  4. BENADRYL [Concomitant]
     Indication: PREMEDICATION

REACTIONS (2)
  - PYREXIA [None]
  - RASH [None]
